FAERS Safety Report 5963374-6 (Version None)
Quarter: 2008Q4

REPORT INFORMATION
  Report Type: 
  Country: None (occurrence: None)
  Receive Date: 20081124
  Receipt Date: 20081118
  Transmission Date: 20090506
  Serious: Yes (Hospitalization)
  Sender: FDA-Public Use
  Company Number: B0541128A

PATIENT
  Age: 44 Year
  Sex: Male

DRUGS (2)
  1. VALTREX [Suspect]
     Indication: HERPES ZOSTER
     Dosage: 1000MG THREE TIMES PER DAY
     Route: 048
     Dates: start: 20080906, end: 20080913
  2. PROPECIA [Concomitant]
     Indication: DRUG USE FOR UNKNOWN INDICATION
     Route: 048
     Dates: end: 20080927

REACTIONS (3)
  - ERYTHEMA [None]
  - PYREXIA [None]
  - TOXIC SKIN ERUPTION [None]
